FAERS Safety Report 6072762-1 (Version None)
Quarter: 2009Q1

REPORT INFORMATION
  Report Type: 
  Country: None (occurrence: None)
  Receive Date: 20090210
  Receipt Date: 20090129
  Transmission Date: 20090719
  Serious: Yes (Death)
  Sender: FDA-Public Use
  Company Number: US-ELI_LILLY_AND_COMPANY-US200901005450

PATIENT
  Age: 65 Year

DRUGS (1)
  1. ZYPREXA [Suspect]
     Indication: SLEEP DISORDER
     Dosage: 5 MG, UNK

REACTIONS (1)
  - DEATH [None]
